FAERS Safety Report 14707473 (Version 1)
Quarter: 2018Q2

REPORT INFORMATION
  Report Type: Spontaneous
  Country: US (occurrence: US)
  Receive Date: 20180403
  Receipt Date: 20180403
  Transmission Date: 20180711
  Serious: No
  Sender: FDA-Public Use
  Company Number: US-GLENMARK PHARMACEUTICALS-2018GMK032446

PATIENT

DRUGS (1)
  1. CALCIPOTRIENE CREAM 0.005% [Suspect]
     Active Substance: CALCIPOTRIENE
     Indication: PAIN
     Dosage: UNK
     Route: 061

REACTIONS (1)
  - Drug effective for unapproved indication [Unknown]
